FAERS Safety Report 5985963-5 (Version None)
Quarter: 2009Q1

REPORT INFORMATION
  Report Type: 
  Country: None (occurrence: None)
  Receive Date: 20081205
  Receipt Date: 20081205
  Transmission Date: 20090719
  Serious: No
  Sender: FDA-Public Use
  Company Number: None

PATIENT
  Age: 48 Year
  Sex: Female

DRUGS (1)
  1. RISPERIDONE [Suspect]
     Indication: DEPRESSION
     Dosage: TAKE 4ML AT BEDTIME
     Route: 048
     Dates: end: 20070901

REACTIONS (3)
  - FEELING ABNORMAL [None]
  - LABYRINTHITIS [None]
  - POOR QUALITY SLEEP [None]
